FAERS Safety Report 8190281-3 (Version None)
Quarter: 2012Q1

REPORT INFORMATION
  Report Type: 
  Country: None (occurrence: None)
  Receive Date: 20120307
  Receipt Date: 20120227
  Transmission Date: 20120608
  Serious: Yes (Hospitalization, Other)
  Sender: FDA-Public Use
  Company Number: US-JNJFOC-20111203734

PATIENT
  Sex: Male
  Weight: 86.18 kg

DRUGS (4)
  1. TESTOSTERONE [Concomitant]
     Indication: HORMONE REPLACEMENT THERAPY
     Route: 050
  2. TRAZODONE HCL [Concomitant]
     Indication: INSOMNIA
  3. XARELTO [Suspect]
     Indication: THROMBOSIS PROPHYLAXIS
     Route: 048
     Dates: start: 20111124, end: 20111201
  4. XARELTO [Suspect]
     Route: 048
     Dates: start: 20111124, end: 20111201

REACTIONS (3)
  - HAEMARTHROSIS [None]
  - WOUND HAEMORRHAGE [None]
  - WOUND COMPLICATION [None]
